FAERS Safety Report 10096062 (Version 1)
Quarter: 2014Q2

REPORT INFORMATION
  Report Type: Spontaneous
  Country: US (occurrence: US)
  Receive Date: 20140422
  Receipt Date: 20140422
  Transmission Date: 20141212
  Serious: Yes (Hospitalization)
  Sender: FDA-Public Use
  Company Number: US-BAYER-2014-056531

PATIENT
  Age: 20 Year
  Sex: Female

DRUGS (3)
  1. YASMIN [Suspect]
  2. SINGULAIR [Concomitant]
  3. LORTAB [Concomitant]
     Indication: PAIN
     Dosage: UNK

REACTIONS (1)
  - Pulmonary embolism [None]
